FAERS Safety Report 6071857-6 (Version None)
Quarter: 2009Q1

REPORT INFORMATION
  Report Type: 
  Country: None (occurrence: None)
  Receive Date: 20090205
  Receipt Date: 20090122
  Transmission Date: 20090719
  Serious: Yes (Hospitalization)
  Sender: FDA-Public Use
  Company Number: MPS1-1000173

PATIENT
  Age: 6 Year
  Sex: Female
  Weight: 14.1 kg

DRUGS (6)
  1. ALDURAZYME [Suspect]
     Indication: MUCOPOLYSACCHARIDOSIS
     Dosage: 8.7 MG, 1X/W, INTRAVENOUS
     Route: 042
     Dates: start: 20040115
  2. ACETAMINOPHEN [Concomitant]
  3. BENADRYL [Concomitant]
  4. XOPENEX [Concomitant]
  5. PULMICORT [Concomitant]
  6. REGLAN [Concomitant]

REACTIONS (3)
  - INFECTION [None]
  - MALAISE [None]
  - PNEUMONIA [None]
